FAERS Safety Report 10677398 (Version 5)
Quarter: 2015Q4

REPORT INFORMATION
  Report Type: Spontaneous
  Country: CA (occurrence: CA)
  Receive Date: 20141227
  Receipt Date: 20151207
  Transmission Date: 20160304
  Serious: Yes (Other)
  Sender: FDA-Public Use
  Company Number: CA-ROCHE-1513144

PATIENT
  Age: 69 Year
  Sex: Female

DRUGS (15)
  1. CELEBREX [Concomitant]
     Active Substance: CELECOXIB
     Route: 065
  2. DEXAMETHASONE. [Concomitant]
     Active Substance: DEXAMETHASONE
  3. PERJETA [Suspect]
     Active Substance: PERTUZUMAB
     Indication: HER-2 POSITIVE BREAST CANCER
     Dosage: 14ML VIAL - CONCENTRATE SOL.; SOLUTION INTRAVENOUS
     Route: 042
  4. ROSUVASTATIN [Concomitant]
     Active Substance: ROSUVASTATIN
     Route: 065
  5. VITAMIN B COMPLEX [Concomitant]
     Active Substance: CYANOCOBALAMIN\DEXPANTHENOL\NIACINAMIDE\PYRIDOXINE HYDROCHLORIDE\RIBOFLAVIN 5^-PHOSPHATE SODIUM\THIAMINE HYDROCHLORIDE\VITAMIN B COMPLEX
  6. ZESTORETIC [Concomitant]
     Active Substance: HYDROCHLOROTHIAZIDE\LISINOPRIL
  7. HERCEPTIN [Suspect]
     Active Substance: TRASTUZUMAB
     Indication: BREAST CANCER METASTATIC
     Dosage: VIALS; POWDER FOR SOLUTION INTRAVENOUS
     Route: 042
  8. CLONAZEPAM. [Concomitant]
     Active Substance: CLONAZEPAM
  9. EFFEXOR XR [Concomitant]
     Active Substance: VENLAFAXINE HYDROCHLORIDE
     Route: 065
  10. PAXIL (CANADA) [Concomitant]
  11. ASCORBIC ACID. [Concomitant]
     Active Substance: ASCORBIC ACID
  12. TAXOTERE [Suspect]
     Active Substance: DOCETAXEL
     Indication: BREAST CANCER METASTATIC
     Route: 042
  13. KADCYLA [Suspect]
     Active Substance: ADO-TRASTUZUMAB EMTANSINE
     Indication: HER-2 POSITIVE BREAST CANCER
     Dosage: 100MG AND 160MG SINGLE USE VIALS; POWDER FOR SOLUTION INTRAVENOUS
     Route: 042
  14. ERGOCALCIFEROL. [Concomitant]
     Active Substance: ERGOCALCIFEROL
  15. PANTOLOC [Concomitant]
     Active Substance: PANTOPRAZOLE SODIUM

REACTIONS (38)
  - Dyspnoea [Unknown]
  - Paraesthesia [Unknown]
  - Bone pain [Unknown]
  - Poor venous access [Unknown]
  - Cough [Unknown]
  - Nasopharyngitis [Unknown]
  - Diarrhoea [Unknown]
  - Dry skin [Unknown]
  - Hypoaesthesia [Unknown]
  - Pyrexia [Unknown]
  - Chest pain [Unknown]
  - Fracture [Unknown]
  - Local swelling [Unknown]
  - Dysgeusia [Unknown]
  - Peripheral swelling [Unknown]
  - Dermatitis [Unknown]
  - Fungal infection [Unknown]
  - Myalgia [Unknown]
  - Gingival operation [Not Recovered/Not Resolved]
  - Face oedema [Unknown]
  - Weight decreased [Unknown]
  - Gingival swelling [Unknown]
  - Pruritus [Unknown]
  - Rectal haemorrhage [Unknown]
  - Epistaxis [Unknown]
  - Gingivitis [Unknown]
  - Tooth extraction [Unknown]
  - Hypertension [Unknown]
  - Fatigue [Unknown]
  - Headache [Unknown]
  - Pain in extremity [Unknown]
  - Tumour marker increased [Unknown]
  - Skin infection [Unknown]
  - Malaise [Unknown]
  - Dry mouth [Unknown]
  - Muscle spasms [Unknown]
  - Rhinorrhoea [Unknown]
  - Tooth disorder [Unknown]
